FAERS Safety Report 10405595 (Version 1)
Quarter: 2014Q3

REPORT INFORMATION
  Report Type: Spontaneous
  Country: US (occurrence: US)
  Receive Date: 20140825
  Receipt Date: 20140825
  Transmission Date: 20150326
  Serious: No
  Sender: FDA-Public Use
  Company Number: US-B.I. PHARMACEUTICALS,INC./RIDGEFIELD-2014-BI-38699BP

PATIENT
  Age: 70 Year
  Sex: Male

DRUGS (2)
  1. DIABETES PILL [Concomitant]
     Indication: DIABETES MELLITUS
     Route: 048
  2. TRADJENTA [Suspect]
     Active Substance: LINAGLIPTIN
     Indication: DIABETES MELLITUS
     Route: 065

REACTIONS (2)
  - Blood glucose abnormal [Unknown]
  - Blood glucose decreased [Unknown]
